FAERS Safety Report 9879054 (Version 1)
Quarter: 2014Q1

REPORT INFORMATION
  Report Type: Spontaneous
  Country: US (occurrence: US)
  Receive Date: 20140206
  Receipt Date: 20140206
  Transmission Date: 20141002
  Serious: Yes (Other)
  Sender: FDA-Public Use
  Company Number: US-PFIZER INC-2014030809

PATIENT
  Age: 36 Year
  Sex: Female

DRUGS (13)
  1. NEURONTIN [Suspect]
     Indication: FIBROMYALGIA
     Dosage: 300 MG, 1X/DAY AT BEDTIME
     Route: 048
  2. HYDROCHLOROTHIAZIDE [Suspect]
     Dosage: UNK
     Route: 048
  3. VICODIN [Suspect]
     Indication: PAIN
     Dosage: 5-500MG (1-2 TABS ) EVERY FOUR HOURS AS NEEDED
     Route: 048
  4. VICODIN [Suspect]
     Indication: BACK PAIN
  5. PROZAC [Suspect]
     Indication: DEPRESSION
     Dosage: 60 MG, DAILY
     Route: 048
  6. PROZAC [Suspect]
     Indication: ANXIETY
  7. ABILIFY [Suspect]
     Indication: DEPRESSION
     Dosage: 10 MG, DAILY
     Route: 048
  8. ABILIFY [Suspect]
     Indication: ANXIETY
  9. KLONOPIN [Suspect]
     Indication: DEPRESSION
     Dosage: 1 MG, 2X/DAY
     Route: 048
  10. KLONOPIN [Suspect]
     Indication: ANXIETY
  11. OXYCODONE [Concomitant]
     Dosage: UNK
  12. DULOXETINE [Concomitant]
     Dosage: UNK
  13. SIMVASTATIN [Concomitant]
     Dosage: UNK

REACTIONS (32)
  - Deafness [Unknown]
  - Musculoskeletal discomfort [Unknown]
  - Arthralgia [Unknown]
  - Chest pain [Unknown]
  - Neck pain [Unknown]
  - Back pain [Unknown]
  - Local swelling [Unknown]
  - Musculoskeletal stiffness [Unknown]
  - Fatigue [Unknown]
  - Insomnia [Unknown]
  - Depression [Unknown]
  - Anxiety [Unknown]
  - Diarrhoea [Unknown]
  - Nausea [Unknown]
  - Vomiting [Unknown]
  - Dyspnoea exertional [Unknown]
  - Snoring [Unknown]
  - Dry eye [Unknown]
  - Pain in jaw [Unknown]
  - Cough [Unknown]
  - Wheezing [Unknown]
  - Migraine [Unknown]
  - Dizziness [Unknown]
  - Syncope [Unknown]
  - Insomnia [Unknown]
  - Hypoaesthesia [Unknown]
  - Muscle spasms [Unknown]
  - Paraesthesia [Unknown]
  - Gait disturbance [Unknown]
  - Head titubation [Unknown]
  - Dry skin [Unknown]
  - Tenderness [Unknown]
